FAERS Safety Report 12073731 (Version 1)
Quarter: 2016Q1

REPORT INFORMATION
  Report Type: Report from Study
  Country: US (occurrence: US)
  Receive Date: 20160212
  Receipt Date: 20160212
  Transmission Date: 20160526
  Serious: Yes (Other)
  Sender: FDA-Public Use
  Company Number: US-ELI_LILLY_AND_COMPANY-US201602001431

PATIENT
  Sex: Female

DRUGS (1)
  1. CYMBALTA [Suspect]
     Active Substance: DULOXETINE HYDROCHLORIDE
     Indication: DIABETIC NEUROPATHY
     Dosage: 60 MG, UNKNOWN
     Route: 065
     Dates: start: 2014, end: 20160129

REACTIONS (5)
  - Suicidal ideation [Unknown]
  - Screaming [Unknown]
  - Emotional disorder [Unknown]
  - Crying [Unknown]
  - Drug withdrawal syndrome [Unknown]
